FAERS Safety Report 9224321 (Version 1)
Quarter: 2013Q1

REPORT INFORMATION
  Report Type: Spontaneous
  Country: US (occurrence: None)
  Receive Date: 20120917
  Receipt Date: 20120917
  Transmission Date: 20140127
  Serious: Yes (Other)
  Sender: FDA-Public Use
  Company Number: 2011SP054193

PATIENT
  Age: 41 Year
  Sex: Female

DRUGS (1)
  1. IMPLANON 68 MG [Suspect]
     Indication: PRODUCT USED FOR UNKNOWN INDICATION
     Dates: start: 2008

REACTIONS (1)
  - Deep vein thrombosis [None]
